FAERS Safety Report 5794150-5 (Version None)
Quarter: 2008Q2

REPORT INFORMATION
  Report Type: 
  Country: None (occurrence: None)
  Receive Date: 20080627
  Receipt Date: 20080617
  Transmission Date: 20081010
  Serious: Yes (Hospitalization, Other)
  Sender: FDA-Public Use
  Company Number: US-MERCK-0802USA05963

PATIENT
  Age: 70 Year
  Sex: Female
  Weight: 59 kg

DRUGS (2)
  1. FOSAMAX [Suspect]
     Indication: OSTEOPOROSIS
     Route: 048
     Dates: start: 19990101
  2. FOSAMAX [Suspect]
     Route: 048
     Dates: end: 20071101

REACTIONS (16)
  - ADVERSE EVENT [None]
  - CHEST PAIN [None]
  - DEPRESSION [None]
  - FALL [None]
  - FRACTURE [None]
  - HOT FLUSH [None]
  - HYPERTENSION [None]
  - MUSCULOSKELETAL PAIN [None]
  - MYALGIA [None]
  - ORAL TORUS [None]
  - OSTEONECROSIS [None]
  - PARAESTHESIA [None]
  - PELVIC FRACTURE [None]
  - ROAD TRAFFIC ACCIDENT [None]
  - TRAUMATIC FRACTURE [None]
  - TUBERCULIN TEST POSITIVE [None]
